FAERS Safety Report 4928334-2 (Version None)
Quarter: 2006Q1

REPORT INFORMATION
  Report Type: 
  Country: None (occurrence: None)
  Receive Date: 20060228
  Receipt Date: 20050302
  Transmission Date: 20060701
  Serious: Yes (Hospitalization)
  Sender: FDA-Public Use
  Company Number: US-MERCK-0503USA00674

PATIENT
  Age: 60 Year
  Sex: Female

DRUGS (12)
  1. NEURONTIN [Concomitant]
     Route: 065
  2. PRINIVIL [Concomitant]
     Route: 048
     Dates: start: 20011105, end: 20011228
  3. RENAGEL [Concomitant]
     Route: 065
  4. CALCIUM CARBONATE [Concomitant]
     Route: 065
  5. DOCUSATE SODIUM [Concomitant]
     Route: 065
  6. ENDOCET [Concomitant]
     Route: 065
  7. ZESTRIL [Concomitant]
     Indication: ARTHRITIS
     Route: 065
     Dates: start: 20010921, end: 20011104
  8. LASIX [Concomitant]
     Route: 065
     Dates: start: 20000207, end: 20030101
  9. RANITIDINE [Concomitant]
     Route: 065
  10. LABETALOL HYDROCHLORIDE [Concomitant]
     Route: 065
     Dates: start: 20000207
  11. HUMALOG [Concomitant]
     Route: 065
  12. VIOXX [Suspect]
     Indication: ARTHRITIS
     Route: 048
     Dates: start: 20000822, end: 20030925

REACTIONS (18)
  - ARTERIOSCLEROSIS CORONARY ARTERY [None]
  - ARTHRALGIA [None]
  - ATRIAL FIBRILLATION [None]
  - BRADYARRHYTHMIA [None]
  - BRADYCARDIA [None]
  - CEREBROVASCULAR ACCIDENT [None]
  - DRUG DEPENDENCE [None]
  - HEART VALVE INSUFFICIENCY [None]
  - HYPERCHOLESTEROLAEMIA [None]
  - HYPERKALAEMIA [None]
  - LIVER FUNCTION TEST ABNORMAL [None]
  - MYOCARDIAL INFARCTION [None]
  - NECK MASS [None]
  - NEPHROSCLEROSIS [None]
  - TENDON DISORDER [None]
  - THROMBOSIS [None]
  - THYROID CYST [None]
  - TRANSIENT ISCHAEMIC ATTACK [None]
